FAERS Safety Report 5993851-3 (Version None)
Quarter: 2008Q4

REPORT INFORMATION
  Report Type: 
  Country: None (occurrence: None)
  Receive Date: 20081212
  Receipt Date: 20080915
  Transmission Date: 20090506
  Serious: No
  Sender: FDA-Public Use
  Company Number: US-ABBOTT-08P-163-0432103-00

PATIENT
  Sex: Female
  Weight: 3.108 kg

DRUGS (4)
  1. HUMIRA [Suspect]
     Indication: DRUG EXPOSURE DURING PREGNANCY
     Route: 064
  2. HYPOALLERGENIC FORMULA [Concomitant]
     Indication: FLATULENCE
  3. HYPOALLERGENIC FORMULA [Concomitant]
     Indication: IRRITABILITY
  4. HYPOALLERGENIC FORMULA [Concomitant]
     Indication: DYSPEPSIA

REACTIONS (4)
  - DRUG EXPOSURE DURING PREGNANCY [None]
  - DYSPEPSIA [None]
  - FLATULENCE [None]
  - IRRITABILITY [None]
